FAERS Safety Report 7288429-8 (Version None)
Quarter: 2011Q1

REPORT INFORMATION
  Report Type: 
  Country: None (occurrence: None)
  Receive Date: 20110211
  Receipt Date: 20110209
  Transmission Date: 20110831
  Serious: Yes (Other)
  Sender: FDA-Public Use
  Company Number: A0912704A

PATIENT
  Age: 68 Year
  Sex: Female

DRUGS (2)
  1. AVANDAMET [Suspect]
     Route: 048
  2. UNSPECIFIED MEDICATION [Concomitant]

REACTIONS (4)
  - TREATMENT NONCOMPLIANCE [None]
  - PLEURAL EFFUSION [None]
  - HEPATIC CIRRHOSIS [None]
  - VARICES OESOPHAGEAL [None]
